FAERS Safety Report 15475777 (Version 1)
Quarter: 2018Q4

REPORT INFORMATION
  Report Type: Spontaneous
  Country: US (occurrence: US)
  Receive Date: 20181009
  Receipt Date: 20181009
  Transmission Date: 20190205
  Serious: Yes (Hospitalization, Other)
  Sender: FDA-Public Use
  Company Number: US-AUROBINDO-AUR-APL-2018-048687

PATIENT
  Age: 24 Year
  Sex: Female

DRUGS (4)
  1. ACETAMINOPHEN TABLET [Suspect]
     Active Substance: ACETAMINOPHEN
     Indication: PRODUCT USED FOR UNKNOWN INDICATION
     Dosage: UNK (AT 21 WEEKS GESTATION)
     Route: 065
  2. BENADRYL [Suspect]
     Active Substance: DIPHENHYDRAMINE HYDROCHLORIDE
     Indication: PRODUCT USED FOR UNKNOWN INDICATION
     Dosage: UNK (AT 21 WEEKS GESTATION)
     Route: 065
  3. ASPIRIN                            /00002701/ [Suspect]
     Active Substance: ASPIRIN
     Indication: PRODUCT USED FOR UNKNOWN INDICATION
     Dosage: UNK (AT 21 WEEKS GESTATION)
     Route: 065
  4. CAFFEINE. [Suspect]
     Active Substance: CAFFEINE
     Indication: PRODUCT USED FOR UNKNOWN INDICATION
     Dosage: UNK (AT 21 WEEKS GESTATION)
     Route: 065

REACTIONS (5)
  - Suicide attempt [Unknown]
  - Foetal movement disorder [Unknown]
  - Analgesic drug level increased [Recovered/Resolved]
  - Hepatic enzyme increased [Recovered/Resolved]
  - Exposure during pregnancy [Unknown]
